FAERS Safety Report 7797248-5 (Version None)
Quarter: 2011Q4

REPORT INFORMATION
  Report Type: 
  Country: None (occurrence: None)
  Receive Date: 20111005
  Receipt Date: 20111001
  Transmission Date: 20120403
  Serious: Yes (Death, Hospitalization)
  Sender: FDA-Public Use
  Company Number: PHHY2011MX87449

PATIENT
  Sex: Male

DRUGS (2)
  1. DIOVAN [Suspect]
     Indication: HYPERTENSION
  2. ASPIRIN [Concomitant]
     Dosage: 1 DF  A DAY

REACTIONS (4)
  - PULMONARY OEDEMA [None]
  - DYSPNOEA [None]
  - CARDIOMEGALY [None]
  - CARDIAC FAILURE [None]
